FAERS Safety Report 10508526 (Version 13)
Quarter: 2016Q2

REPORT INFORMATION
  Report Type: Report from Study
  Country: CA (occurrence: CA)
  Receive Date: 20141009
  Receipt Date: 20160615
  Transmission Date: 20160815
  Serious: Yes (Other)
  Sender: FDA-Public Use
  Company Number: CA-GSKJP-KK201304856GSK1550188002

PATIENT

DRUGS (33)
  1. BELIMUMAB [Suspect]
     Active Substance: BELIMUMAB
     Dosage: 1090 MG, UNK
     Route: 042
     Dates: start: 2013
  2. BELIMUMAB [Suspect]
     Active Substance: BELIMUMAB
     Dosage: 1250 MG, UNK
     Route: 042
  3. BELIMUMAB [Suspect]
     Active Substance: BELIMUMAB
     Dosage: 1250 MG, UNK
     Route: 042
  4. SYNTHROID [Concomitant]
     Active Substance: LEVOTHYROXINE SODIUM
     Indication: PRODUCT USED FOR UNKNOWN INDICATION
     Dosage: UNK
  5. CALCIUM [Concomitant]
     Active Substance: CALCIUM
     Indication: SYSTEMIC LUPUS ERYTHEMATOSUS
     Dosage: 500 MG, UNK
  6. ACTONEL [Concomitant]
     Active Substance: RISEDRONATE SODIUM
     Indication: PRODUCT USED FOR UNKNOWN INDICATION
     Dosage: 35 MG, UNK
  7. BELIMUMAB [Suspect]
     Active Substance: BELIMUMAB
     Dosage: UNK
     Route: 042
     Dates: start: 20120302
  8. BELIMUMAB [Suspect]
     Active Substance: BELIMUMAB
     Dosage: UNK, 2 VIALS
     Route: 042
  9. NEXIUM [Concomitant]
     Active Substance: ESOMEPRAZOLE MAGNESIUM
     Indication: PRODUCT USED FOR UNKNOWN INDICATION
     Dosage: 40 MG, 1D
  10. METHOTREXATE [Suspect]
     Active Substance: METHOTREXATE
     Indication: SYSTEMIC LUPUS ERYTHEMATOSUS
     Dosage: 20 MG, UNK
  11. FOLIC ACID. [Concomitant]
     Active Substance: FOLIC ACID
     Indication: SYSTEMIC LUPUS ERYTHEMATOSUS
     Dosage: UNK, 1D
     Route: 048
  12. METHOTREXATE [Concomitant]
     Active Substance: METHOTREXATE
     Indication: PRODUCT USED FOR UNKNOWN INDICATION
     Dosage: UNK
  13. NIFEDIPINE. [Concomitant]
     Active Substance: NIFEDIPINE
     Indication: PRODUCT USED FOR UNKNOWN INDICATION
     Dosage: 30 MG, QD
  14. REFLEX (CAMPHOR + MENTHOL + METHYL SALICYLATE + TURPENTINE) [Concomitant]
     Indication: PAIN IN EXTREMITY
     Dosage: UNK
  15. ZOPICLONE [Concomitant]
     Active Substance: ZOPICLONE
     Indication: PRODUCT USED FOR UNKNOWN INDICATION
     Dosage: 17 MG, UNK
  16. ADALAT CC [Concomitant]
     Active Substance: NIFEDIPINE
     Indication: HYPERTENSION
     Dosage: 30 MG, 1D
     Route: 048
  17. MELOXICAM. [Concomitant]
     Active Substance: MELOXICAM
     Indication: PRODUCT USED FOR UNKNOWN INDICATION
     Dosage: UNK
  18. BELIMUMAB [Suspect]
     Active Substance: BELIMUMAB
     Dosage: UNK
     Route: 042
     Dates: start: 20120302
  19. BELIMUMAB [Suspect]
     Active Substance: BELIMUMAB
     Dosage: 1250 MG, 4 VIALS
     Route: 042
  20. ELAVIL [Concomitant]
     Active Substance: AMITRIPTYLINE HYDROCHLORIDE
     Indication: PRODUCT USED FOR UNKNOWN INDICATION
     Dosage: 50 MG, UNK
  21. TECTA [Concomitant]
     Active Substance: PANTOPRAZOLE MAGNESIUM
     Indication: PRODUCT USED FOR UNKNOWN INDICATION
     Dosage: UNK
  22. DOMPERIDONE [Concomitant]
     Active Substance: DOMPERIDONE
     Indication: PRODUCT USED FOR UNKNOWN INDICATION
     Dosage: 10 MG, BID
  23. BELIMUMAB [Suspect]
     Active Substance: BELIMUMAB
     Indication: SYSTEMIC LUPUS ERYTHEMATOSUS
     Dosage: 1000 MG INFUSION AT WEEK 0,2,4 AND THEN MONTHLY(EVERY 4 WEEKS)
     Route: 042
     Dates: start: 20120302
  24. ROSUVASTATIN CALCIUM. [Suspect]
     Active Substance: ROSUVASTATIN CALCIUM
     Indication: BLOOD CHOLESTEROL INCREASED
     Dosage: UNK
  25. BELIMUMAB [Suspect]
     Active Substance: BELIMUMAB
     Dosage: UNK
     Route: 042
     Dates: start: 20120302
  26. BELIMUMAB [Suspect]
     Active Substance: BELIMUMAB
     Dosage: UNK
     Route: 042
     Dates: start: 20120302
  27. TYLENOL [Concomitant]
     Active Substance: ACETAMINOPHEN
     Indication: PRODUCT USED FOR UNKNOWN INDICATION
     Dosage: UNK
  28. BELIMUMAB [Suspect]
     Active Substance: BELIMUMAB
     Dosage: 1090 MG, UNK
     Route: 042
     Dates: start: 20120316
  29. BELIMUMAB [Suspect]
     Active Substance: BELIMUMAB
     Dosage: UNK, 3 VIALS
     Route: 042
  30. PREDNISONE. [Concomitant]
     Active Substance: PREDNISONE
     Indication: SYSTEMIC LUPUS ERYTHEMATOSUS
     Dosage: 5 MG, 1D
     Route: 048
  31. NORVASC [Concomitant]
     Active Substance: AMLODIPINE BESYLATE
     Indication: PRODUCT USED FOR UNKNOWN INDICATION
     Dosage: 10 MG, 1D
  32. COLACE [Concomitant]
     Active Substance: DOCUSATE SODIUM
     Indication: PRODUCT USED FOR UNKNOWN INDICATION
     Dosage: UNK
  33. CRESTOR [Concomitant]
     Active Substance: ROSUVASTATIN CALCIUM
     Indication: PRODUCT USED FOR UNKNOWN INDICATION
     Dosage: UNK

REACTIONS (44)
  - Biopsy breast [Unknown]
  - Sinusitis [Recovered/Resolved]
  - Epistaxis [Unknown]
  - Skin discolouration [Recovered/Resolved]
  - Aphasia [Unknown]
  - Malaise [Unknown]
  - Hernia [Unknown]
  - Skin lesion [Unknown]
  - Lower respiratory tract infection [Recovered/Resolved]
  - Oral herpes [Unknown]
  - Blood cholesterol increased [Unknown]
  - Contusion [Recovered/Resolved]
  - Tremor [Recovering/Resolving]
  - Ill-defined disorder [Unknown]
  - Smear cervix abnormal [Unknown]
  - Initial insomnia [Not Recovered/Not Resolved]
  - Photosensitivity reaction [Unknown]
  - Pyrexia [Unknown]
  - Acrochordon [Not Recovered/Not Resolved]
  - Melanocytic naevus [Not Recovered/Not Resolved]
  - Uterine prolapse [Unknown]
  - Fatigue [Not Recovered/Not Resolved]
  - Urticaria [Recovered/Resolved]
  - Diarrhoea [Recovered/Resolved]
  - Disability [Unknown]
  - Flushing [Recovered/Resolved]
  - Insomnia [Not Recovered/Not Resolved]
  - Productive cough [Unknown]
  - Nausea [Recovered/Resolved]
  - Fatigue [Unknown]
  - Basal cell carcinoma [Unknown]
  - Vomiting [Recovered/Resolved]
  - Arthropathy [Unknown]
  - Cyst [Recovered/Resolved]
  - Arthritis [Unknown]
  - Arthralgia [Recovering/Resolving]
  - Pain [Unknown]
  - Muscle spasms [Recovered/Resolved]
  - Erythema [Recovered/Resolved]
  - Wound [Unknown]
  - Sinus congestion [Recovered/Resolved]
  - Pain in extremity [Unknown]
  - Peripheral swelling [Unknown]
  - Gastroenteritis [Recovered/Resolved]

NARRATIVE: CASE EVENT DATE: 20120303
